FAERS Safety Report 6696721-0 (Version None)
Quarter: 2010Q2

REPORT INFORMATION
  Report Type: 
  Country: None (occurrence: None)
  Receive Date: 20100422
  Receipt Date: 20100409
  Transmission Date: 20101027
  Serious: Yes (Disabling, Other)
  Sender: FDA-Public Use
  Company Number: 2010CA0005

PATIENT
  Sex: Male

DRUGS (1)
  1. ORFADIN [Suspect]
     Indication: TYROSINAEMIA
     Dosage: 0, 93 MG/KG (2 MG, 3 IN 1 D), ORAL
     Route: 048
     Dates: start: 20030820

REACTIONS (5)
  - ASPARTATE AMINOTRANSFERASE INCREASED [None]
  - BLOOD CREATINE PHOSPHOKINASE INCREASED [None]
  - DEVELOPMENTAL DELAY [None]
  - MICROCEPHALY [None]
  - URINE DELTA AMINOLEVULINATE INCREASED [None]
